FAERS Safety Report 5463327-0 (Version None)
Quarter: 2007Q3

REPORT INFORMATION
  Report Type: 
  Country: None (occurrence: None)
  Receive Date: 20070920
  Receipt Date: 20070913
  Transmission Date: 20080115
  Serious: Yes (Hospitalization)
  Sender: FDA-Public Use
  Company Number: HQWYE192023JUL07

PATIENT
  Age: 69 Year
  Sex: Female

DRUGS (3)
  1. INDERAL [Suspect]
     Dosage: NOT APPLICABLE
  2. EPADEL [Concomitant]
     Route: 048
     Dates: start: 20041001, end: 20060412
  3. AJMALINE [Suspect]
     Route: 048
     Dates: start: 20060313, end: 20060323

REACTIONS (1)
  - VANISHING BILE DUCT SYNDROME [None]
